FAERS Safety Report 8815422 (Version 1)
Quarter: 2012Q4

REPORT INFORMATION
  Report Type: 
  Country: US (occurrence: US)
  Receive Date: 20120928
  Receipt Date: 20120928
  Transmission Date: 20130627
  Serious: Yes (Death, Hospitalization)
  Sender: FDA-Public Use
  Company Number: US-CELGENEUS-163-21880-12092868

PATIENT
  Age: 88 Year
  Sex: Male
  Weight: 76.27 kg

DRUGS (5)
  1. REVLIMID [Suspect]
     Indication: MULTIPLE MYELOMA
     Dosage: 10 Milligram
     Route: 048
     Dates: start: 200910
  2. REVLIMID [Suspect]
     Dosage: 5 Milligram
     Route: 048
     Dates: start: 201011
  3. REVLIMID [Suspect]
     Dosage: 5 Milligram
     Route: 048
     Dates: start: 201110
  4. REVLIMID [Suspect]
     Dosage: 5 Milligram
     Route: 048
     Dates: start: 201202
  5. REVLIMID [Suspect]
     Dosage: 5 Milligram
     Route: 048
     Dates: start: 201205

REACTIONS (4)
  - Death [Fatal]
  - Fall [Unknown]
  - General physical health deterioration [Unknown]
  - Cerebrovascular accident [Unknown]
